FAERS Safety Report 25116596 (Version 4)
Quarter: 2025Q2

REPORT INFORMATION
  Report Type: Report from Study
  Country: CA (occurrence: CA)
  Receive Date: 20250325
  Receipt Date: 20250606
  Transmission Date: 20250716
  Serious: Yes (Hospitalization)
  Sender: CSL BEHRING
  Company Number: CA-BEH-2025196705

PATIENT
  Age: 63 Year
  Sex: Female
  Weight: 59.87 kg

DRUGS (22)
  1. HIZENTRA [Suspect]
     Active Substance: HUMAN IMMUNOGLOBULIN G
     Indication: Primary immunodeficiency syndrome
     Dosage: STRENGTH 6 G, QW
     Route: 058
     Dates: start: 20250216
  2. HIZENTRA [Suspect]
     Active Substance: HUMAN IMMUNOGLOBULIN G
     Dosage: STRENGTH 6 G QW
     Route: 058
     Dates: start: 20250216
  3. HIZENTRA [Suspect]
     Active Substance: HUMAN IMMUNOGLOBULIN G
     Dosage: STRENGTH 6 G, QW
     Route: 058
  4. HIZENTRA [Suspect]
     Active Substance: HUMAN IMMUNOGLOBULIN G
     Dosage: 6 G, QW
     Route: 058
     Dates: start: 20250216
  5. HUMAN IMMUNOGLOBULIN G [Suspect]
     Active Substance: HUMAN IMMUNOGLOBULIN G
     Indication: Product used for unknown indication
     Route: 042
  6. SYNTHROID [Concomitant]
     Active Substance: LEVOTHYROXINE SODIUM
  7. Jamp ketorolac [Concomitant]
  8. ASPIRIN [Concomitant]
     Active Substance: ASPIRIN
  9. VITAMIN B COMPLEX [Concomitant]
     Active Substance: CYANOCOBALAMIN\DEXPANTHENOL\NIACINAMIDE\PYRIDOXINE HYDROCHLORIDE\RIBOFLAVIN 5^-PHOSPHATE SODIUM\THIA
  10. SPIRONOLACTONE [Concomitant]
     Active Substance: SPIRONOLACTONE
  11. ATORVASTATIN CALCIUM TRIHYDRATE [Concomitant]
     Active Substance: ATORVASTATIN CALCIUM TRIHYDRATE
  12. QUETIAPINE [Concomitant]
     Active Substance: QUETIAPINE
  13. DIAZEPAM [Concomitant]
     Active Substance: DIAZEPAM
  14. IMOVANE [Concomitant]
     Active Substance: ZOPICLONE
  15. CYCLOBENZAPRINE [Concomitant]
     Active Substance: CYCLOBENZAPRINE
  16. Emtac [Concomitant]
  17. MORPHINE [Concomitant]
     Active Substance: MORPHINE
  18. VITAMIN D3 [Concomitant]
     Active Substance: CHOLECALCIFEROL
  19. OMEGA 3 [Concomitant]
     Active Substance: CAPSAICIN
  20. MAGNESIUM [Concomitant]
     Active Substance: MAGNESIUM
  21. PROBIOTICS NOS [Concomitant]
     Active Substance: PROBIOTICS NOS
  22. METHENAMINE [Concomitant]
     Active Substance: METHENAMINE

REACTIONS (36)
  - Feeling abnormal [Unknown]
  - Dizziness [Unknown]
  - Dizziness [Unknown]
  - Tinnitus [Unknown]
  - Fluid retention [Unknown]
  - Tremor [Unknown]
  - Brain fog [Unknown]
  - Hospitalisation [Unknown]
  - Cardiac dysfunction [Unknown]
  - Renal impairment [Unknown]
  - Fluid retention [Unknown]
  - Therapy cessation [Unknown]
  - Brain fog [Unknown]
  - Nervousness [Unknown]
  - Eructation [Unknown]
  - Dyspepsia [Unknown]
  - Headache [Unknown]
  - Headache [Recovered/Resolved]
  - Brain fog [Unknown]
  - Eructation [Unknown]
  - Anxiety [Unknown]
  - Dyspepsia [Unknown]
  - Nervousness [Unknown]
  - Impaired quality of life [Unknown]
  - Infusion site vesicles [Unknown]
  - Headache [Unknown]
  - Nausea [Unknown]
  - Brain fog [Unknown]
  - Infusion site swelling [Unknown]
  - Infusion site bruising [Unknown]
  - Infusion site erythema [Unknown]
  - Infusion site warmth [Unknown]
  - Infusion site pain [Unknown]
  - Product use issue [Unknown]
  - Infusion site reaction [Unknown]
  - Product dose omission in error [Unknown]

NARRATIVE: CASE EVENT DATE: 20250216
